FAERS Safety Report 4691943-2 (Version None)
Quarter: 2005Q2

REPORT INFORMATION
  Report Type: 
  Country: None (occurrence: None)
  Receive Date: 20050614
  Receipt Date: 20050531
  Transmission Date: 20051028
  Serious: Yes (Death)
  Sender: FDA-Public Use
  Company Number: 05USA0128

PATIENT
  Sex: Male

DRUGS (6)
  1. AGGRASTAT [Suspect]
     Indication: MYOCARDIAL INFARCTION
     Dates: start: 20050424, end: 20050425
  2. UNSPECFIFIED THERAPY [Concomitant]
  3. ASPIRIN [Concomitant]
  4. ATACARD (RENIN-ANGIOTENSIN SYSTEM, AGENTS ACTING ON) [Concomitant]
  5. ATORVASTATIN CALCIUM [Concomitant]
  6. HEPARIN [Concomitant]

REACTIONS (2)
  - CARDIAC ARREST [None]
  - VENTRICULAR DYSFUNCTION [None]
